FAERS Safety Report 6060608-7 (Version None)
Quarter: 2009Q1

REPORT INFORMATION
  Report Type: 
  Country: None (occurrence: None)
  Receive Date: 20090202
  Receipt Date: 20090126
  Transmission Date: 20090719
  Serious: Yes (Hospitalization)
  Sender: FDA-Public Use
  Company Number: US-AMGEN-US323711

PATIENT
  Sex: Female
  Weight: 77.2 kg

DRUGS (6)
  1. ARANESP [Suspect]
     Indication: RENAL FAILURE CHRONIC
     Dates: start: 20081017, end: 20081208
  2. GLIMEPIRIDE [Concomitant]
     Dates: start: 20070614
  3. FUROSEMIDE [Concomitant]
     Dates: start: 20070614
  4. LISINOPRIL [Concomitant]
     Dates: start: 20070614
  5. VERAPAMIL [Concomitant]
     Dates: start: 20080102, end: 20080521
  6. ATENOLOL [Concomitant]
     Dates: start: 20080521

REACTIONS (4)
  - ASTHENIA [None]
  - HAEMOGLOBIN DECREASED [None]
  - URINARY TRACT INFECTION BACTERIAL [None]
  - URTICARIA [None]
